FAERS Safety Report 5081485-7 (Version None)
Quarter: 2006Q3

REPORT INFORMATION
  Report Type: 
  Country: None (occurrence: None)
  Receive Date: 20060720
  Receipt Date: 20060124
  Transmission Date: 20061208
  Serious: Yes (Other)
  Sender: FDA-Public Use
  Company Number: 2006012745

PATIENT
  Age: 71 Year
  Sex: Female
  Weight: 77.1115 kg

DRUGS (5)
  1. CELEBREX [Suspect]
     Indication: FIBROMYALGIA
     Dosage: 400 MG (200 MG, 2 IN 1 D), ORAL
     Route: 048
  2. CELEBREX [Suspect]
     Indication: OSTEOARTHRITIS
     Dosage: 400 MG (200 MG, 2 IN 1 D), ORAL
     Route: 048
  3. BEXTRA [Suspect]
     Indication: FIBROMYALGIA
     Dosage: (DAILY), ORAL
     Route: 048
  4. NEXIUM [Concomitant]
  5. NORVASC [Concomitant]

REACTIONS (2)
  - DRUG INEFFECTIVE [None]
  - HEADACHE [None]
